FAERS Safety Report 5078451-4 (Version None)
Quarter: 2006Q3

REPORT INFORMATION
  Report Type: 
  Country: None (occurrence: None)
  Receive Date: 20060811
  Receipt Date: 20060731
  Transmission Date: 20061208
  Serious: Yes (Other)
  Sender: FDA-Public Use
  Company Number: DE-NOVOPROD-255709

PATIENT
  Age: 7 Day

DRUGS (1)
  1. NOVOSEVEN [Suspect]
     Indication: PROPHYLAXIS

REACTIONS (2)
  - CATHETER RELATED COMPLICATION [None]
  - IMPLANT SITE REACTION [None]
